FAERS Safety Report 12849478 (Version 3)
Quarter: 2016Q4

REPORT INFORMATION
  Report Type: Report from Study
  Country: SE (occurrence: SE)
  Receive Date: 20161014
  Receipt Date: 20161025
  Transmission Date: 20170207
  Serious: Yes (Life-Threatening, Hospitalization)
  Sender: FDA-Public Use
  Company Number: SE-JNJFOC-20160920282

PATIENT
  Age: 67 Year
  Sex: Male

DRUGS (5)
  1. IBRUTINIB [Suspect]
     Active Substance: IBRUTINIB
     Indication: MANTLE CELL LYMPHOMA
     Route: 048
     Dates: start: 20160111, end: 20160915
  2. LENALIDOMIDE [Suspect]
     Active Substance: LENALIDOMIDE
     Indication: MANTLE CELL LYMPHOMA
     Route: 048
  3. LOPERAMIDE [Concomitant]
     Active Substance: LOPERAMIDE
     Dosage: WHEN NEEDED
     Route: 048
  4. RITUXIMAB [Suspect]
     Active Substance: RITUXIMAB
     Indication: MANTLE CELL LYMPHOMA
     Route: 042
  5. PARACETAMOL [Concomitant]
     Active Substance: ACETAMINOPHEN
     Dosage: WHEN NEEDED
     Route: 048

REACTIONS (1)
  - Guillain-Barre syndrome [Not Recovered/Not Resolved]

NARRATIVE: CASE EVENT DATE: 20160919
